FAERS Safety Report 9057377 (Version 1)
Quarter: 2013Q1

REPORT INFORMATION
  Report Type: Spontaneous
  Country: BR (occurrence: BR)
  Receive Date: 20130204
  Receipt Date: 20130204
  Transmission Date: 20140127
  Serious: Yes (Other)
  Sender: FDA-Public Use
  Company Number: PHHY2013BR001460

PATIENT
  Age: 54 Year
  Sex: Female
  Weight: 84 kg

DRUGS (12)
  1. LUDIOMIL [Suspect]
     Indication: DEPRESSION
     Dosage: 2 TABLET (75 MG) DAILY
     Route: 048
  2. LUDIOMIL [Suspect]
     Dosage: 1 TABLET (75 MG) DAILY
     Route: 048
  3. LUDIOMIL [Suspect]
     Dosage: 1 TABLET (25 MG) DAILY
     Route: 048
  4. LUDIOMIL [Suspect]
     Dosage: HALF TABLET (25 MG) DAILY
     Route: 048
  5. LUDIOMIL [Suspect]
     Dosage: 1 TABLET (25 MG) DAILY
     Route: 048
  6. LUDIOMIL [Suspect]
     Dosage: HALF TABLET (25 MG DAILY
     Route: 048
     Dates: start: 20121224
  7. FLUOXETINE [Suspect]
     Dosage: 20 MG, DAILY
     Route: 048
  8. MAPROTILINA [Suspect]
     Indication: DEPRESSION
     Dosage: 1 DF, DAILY
     Route: 048
     Dates: start: 20121030
  9. ESPRAM [Suspect]
     Indication: DEPRESSION
     Dosage: 10 MG, DAILY
     Route: 048
     Dates: start: 20121101
  10. FRONTAL [Concomitant]
     Indication: ANXIETY
     Dosage: 1 TABLET DAILY (1MG)
     Route: 048
  11. ARADOIS H [Concomitant]
     Indication: HYPERTENSION
     Dosage: 0.5 TABLET (50/12.5MG)
     Route: 048
  12. SOMALGIN [Concomitant]
     Indication: THROMBOSIS PROPHYLAXIS
     Dosage: 1 DF, QD
     Route: 048
     Dates: start: 1989

REACTIONS (8)
  - Hyperthyroidism [Unknown]
  - Hypothyroidism [Not Recovered/Not Resolved]
  - Hyperinsulinaemia [Not Recovered/Not Resolved]
  - Asthenia [Recovered/Resolved]
  - Depression [Recovered/Resolved]
  - Headache [Recovered/Resolved]
  - Tachycardia [Recovered/Resolved]
  - Dizziness [Recovered/Resolved]
